FAERS Safety Report 20565973 (Version 1)
Quarter: 2022Q1

REPORT INFORMATION
  Report Type: Spontaneous
  Country: FR (occurrence: FR)
  Receive Date: 20220308
  Receipt Date: 20220308
  Transmission Date: 20220424
  Serious: Yes (Congenital Anomaly)
  Sender: FDA-Public Use
  Company Number: FR-ABBVIE-22K-056-4301952-00

PATIENT
  Sex: Male

DRUGS (3)
  1. VALPROATE SODIUM [Suspect]
     Active Substance: VALPROATE SODIUM
     Indication: Maternal exposure timing unspecified
     Route: 064
  2. PHENOBARBITAL [Suspect]
     Active Substance: PHENOBARBITAL
     Indication: Maternal exposure timing unspecified
     Route: 064
  3. MYSOLINE [Suspect]
     Active Substance: PRIMIDONE
     Indication: Maternal exposure timing unspecified
     Route: 064

REACTIONS (6)
  - Pectus excavatum [Recovered/Resolved with Sequelae]
  - Hypertelorism [Recovered/Resolved with Sequelae]
  - Inguinal hernia [Recovered/Resolved with Sequelae]
  - Behaviour disorder [Recovered/Resolved with Sequelae]
  - Language disorder [Recovered/Resolved with Sequelae]
  - Foetal exposure during pregnancy [Unknown]

NARRATIVE: CASE EVENT DATE: 19760616
